FAERS Safety Report 15811261 (Version 2)
Quarter: 2019Q2

REPORT INFORMATION
  Report Type: Report from Study
  Country: None (occurrence: NL)
  Receive Date: 20190111
  Receipt Date: 20190606
  Transmission Date: 20190711
  Serious: Yes (Hospitalization, Other)
  Sender: FDA-Public Use
  Company Number: NL-ABBVIE-19S-114-2617720-00

PATIENT
  Sex: Male
  Weight: 68 kg

DRUGS (2)
  1. ROPINIROLE. [Concomitant]
     Active Substance: ROPINIROLE
     Indication: PRODUCT USED FOR UNKNOWN INDICATION
  2. DUODOPA [Suspect]
     Active Substance: CARBIDOPA\LEVODOPA
     Indication: PARKINSON^S DISEASE
     Dosage: CD 4.0?ED 2.0?MD 4.9?CD NIGHT 2.0?ED NIGHT 1.0
     Route: 050
     Dates: start: 20181005

REACTIONS (13)
  - Depressed mood [Recovered/Resolved]
  - Balance disorder [Unknown]
  - Hyperkinesia [Not Recovered/Not Resolved]
  - Foot deformity [Unknown]
  - Confusional state [Unknown]
  - Palpitations [Unknown]
  - Asthenia [Recovered/Resolved]
  - Urinary tract infection [Not Recovered/Not Resolved]
  - Delirium [Not Recovered/Not Resolved]
  - Panic reaction [Recovered/Resolved]
  - Influenza [Recovered/Resolved]
  - Abnormal behaviour [Recovered/Resolved]
  - Aggression [Recovered/Resolved]
